FAERS Safety Report 4877172-8 (Version None)
Quarter: 2005Q4

REPORT INFORMATION
  Report Type: 
  Country: None (occurrence: None)
  Receive Date: 20051206
  Receipt Date: 20051004
  Transmission Date: 20060501
  Serious: No
  Sender: FDA-Public Use
  Company Number: USA0510109964

PATIENT
  Age: 41 Year
  Sex: Female

DRUGS (3)
  1. CYMBALTA [Suspect]
     Indication: DEPRESSION
     Route: 065
     Dates: start: 20050101
  2. TIZANIDINE HCL [Concomitant]
  3. IBUPROFEN [Concomitant]

REACTIONS (1)
  - DRUG SCREEN POSITIVE [None]
